FAERS Safety Report 8448463-9 (Version None)
Quarter: 2012Q2

REPORT INFORMATION
  Report Type: 
  Country: None (occurrence: None)
  Receive Date: 20120612
  Receipt Date: 20120531
  Transmission Date: 20120825
  Serious: Yes (Hospitalization)
  Sender: FDA-Public Use
  Company Number: ABR_00493_2012

PATIENT
  Age: 32 Year
  Sex: Male
  Weight: 89 kg

DRUGS (5)
  1. ERYTHROMYCIN [Suspect]
     Indication: LOWER RESPIRATORY TRACT INFECTION
     Dosage: (DF)
     Dates: start: 20120516
  2. ACETAMINOPHEN AND CODEINE PHOSPHATE [Concomitant]
  3. METHADONE HCL [Concomitant]
  4. PREGABALIN [Concomitant]
  5. MIRTAZAPINE [Concomitant]

REACTIONS (1)
  - SWELLING FACE [None]
